FAERS Safety Report 9808064 (Version 1)
Quarter: 2014Q1

REPORT INFORMATION
  Report Type: Spontaneous
  Country: US (occurrence: US)
  Receive Date: 20140110
  Receipt Date: 20140110
  Transmission Date: 20141002
  Serious: Yes (Hospitalization)
  Sender: FDA-Public Use
  Company Number: US-GLAXOSMITHKLINE-A1056038A

PATIENT
  Sex: Male

DRUGS (3)
  1. ADVAIR HFA [Suspect]
     Indication: ASTHMA
     Route: 055
  2. ALBUTEROL [Suspect]
     Indication: ASTHMA
     Route: 055
  3. FLOVENT [Suspect]
     Indication: ASTHMA
     Route: 055

REACTIONS (6)
  - Investigation [Unknown]
  - Tracheostomy [Unknown]
  - Oxygen saturation decreased [Recovering/Resolving]
  - Increased upper airway secretion [Recovering/Resolving]
  - Drug ineffective [Unknown]
  - Drug administration error [Recovered/Resolved]
